FAERS Safety Report 13063975 (Version 6)
Quarter: 2017Q2

REPORT INFORMATION
  Report Type: Spontaneous
  Country: US (occurrence: US)
  Receive Date: 20161227
  Receipt Date: 20170621
  Transmission Date: 20170830
  Serious: No
  Sender: FDA-Public Use
  Company Number: US-PFIZER INC-2016590692

PATIENT
  Age: 61 Year
  Sex: Female
  Weight: 122.45 kg

DRUGS (4)
  1. IBRANCE [Suspect]
     Active Substance: PALBOCICLIB
     Dosage: 125 MG, CYCLIC (DAYS 1-21, EVERY 28 DAYS)
     Route: 048
     Dates: start: 201401
  2. IBRANCE [Suspect]
     Active Substance: PALBOCICLIB
     Dosage: 125 MG, CYCLIC (DAYS 1-21, EVERY 28 DAYS)
     Route: 048
     Dates: start: 201401
  3. IBRANCE [Suspect]
     Active Substance: PALBOCICLIB
     Dosage: 125 MG, CYCLIC (D1-21 Q 28 DAYS)
     Route: 048
     Dates: start: 201401
  4. IBRANCE [Suspect]
     Active Substance: PALBOCICLIB
     Indication: BREAST CANCER METASTATIC
     Dosage: 125 UNK, CYCLIC (DAYS 1-21, EVERY 28 DAYS)
     Route: 048
     Dates: start: 201401

REACTIONS (9)
  - Drug dose omission [Unknown]
  - Pulmonary mass [Unknown]
  - Oral mucosal exfoliation [Unknown]
  - Pain [Unknown]
  - Neoplasm progression [Not Recovered/Not Resolved]
  - Fatigue [Unknown]
  - Migraine [Unknown]
  - Stomatitis [Not Recovered/Not Resolved]
  - Mucosal inflammation [Not Recovered/Not Resolved]

NARRATIVE: CASE EVENT DATE: 201609
